FAERS Safety Report 9877206 (Version 2)
Quarter: 2014Q1

REPORT INFORMATION
  Report Type: Spontaneous
  Country: BE (occurrence: BE)
  Receive Date: 20140206
  Receipt Date: 20140221
  Transmission Date: 20141002
  Serious: Yes (Life-Threatening, Hospitalization, Other)
  Sender: FDA-Public Use
  Company Number: BE-JNJFOC-20140201463

PATIENT
  Age: 78 Year
  Sex: Female
  Weight: 38 kg

DRUGS (12)
  1. XARELTO [Suspect]
     Indication: CEREBROVASCULAR ACCIDENT PROPHYLAXIS
     Route: 048
     Dates: start: 20120921, end: 20130923
  2. XARELTO [Suspect]
     Indication: ATRIAL FIBRILLATION
     Route: 048
     Dates: start: 20120921, end: 20130923
  3. COVERSYL [Concomitant]
     Indication: CARDIAC FAILURE
     Route: 048
     Dates: start: 201204
  4. LASIX [Concomitant]
     Indication: CARDIAC FAILURE
     Route: 048
     Dates: start: 201204
  5. SPIRIVA [Concomitant]
     Indication: CHRONIC OBSTRUCTIVE PULMONARY DISEASE
     Route: 055
     Dates: start: 2010
  6. EMCONCOR [Concomitant]
     Indication: CARDIAC FAILURE
     Route: 048
  7. STEOVIT D3 [Concomitant]
     Indication: OSTEOPOROSIS
     Route: 048
  8. SERETIDE [Concomitant]
     Indication: CHRONIC OBSTRUCTIVE PULMONARY DISEASE
     Route: 055
     Dates: start: 2010
  9. DUOVENT [Concomitant]
     Indication: CHRONIC OBSTRUCTIVE PULMONARY DISEASE
     Route: 065
  10. XANAX [Concomitant]
     Route: 065
  11. TAMBOCOR [Concomitant]
     Indication: ATRIAL FIBRILLATION
     Route: 048
     Dates: start: 201207, end: 201310
  12. ALENDRONATE SODIUM [Concomitant]
     Indication: OSTEOPOROSIS
     Route: 065
     Dates: start: 201204

REACTIONS (12)
  - Shock haemorrhagic [Recovered/Resolved]
  - Haemangioma [Unknown]
  - Melaena [Recovered/Resolved]
  - Ischaemic hepatitis [Recovered/Resolved]
  - Septic shock [Recovered/Resolved]
  - Renal failure acute [Recovered/Resolved]
  - Cardiac failure [Recovered/Resolved]
  - Pleural effusion [Recovered/Resolved]
  - Gastritis [Recovered/Resolved]
  - Hyponatraemia [Unknown]
  - Mucous membrane disorder [Unknown]
  - Weight decreased [Unknown]
